FAERS Safety Report 13364414 (Version 4)
Quarter: 2017Q3

REPORT INFORMATION
  Report Type: Report from Study
  Country: IE (occurrence: IE)
  Receive Date: 20170323
  Receipt Date: 20170919
  Transmission Date: 20171127
  Serious: Yes (Hospitalization)
  Sender: FDA-Public Use
  Company Number: IE-TAKEDA-2017TUS005415

PATIENT
  Age: 31 Year
  Sex: Female
  Weight: 57 kg

DRUGS (5)
  1. NEXIUM [Concomitant]
     Active Substance: ESOMEPRAZOLE MAGNESIUM
     Dosage: UNK
  2. VEDOLIZUMAB [Suspect]
     Active Substance: VEDOLIZUMAB
     Indication: CROHN^S DISEASE
     Dosage: 300 MG, UNK
     Route: 042
     Dates: start: 20160519, end: 20170714
  3. ESOMEPRAZOLE KRKA                  /01479301/ [Concomitant]
     Dosage: 40 MG, QD
  4. CALCICHEW D3 FORTE [Concomitant]
     Active Substance: CALCIUM\CHOLECALCIFEROL
     Dosage: UNK, BID
  5. PENTASA [Concomitant]
     Active Substance: MESALAMINE
     Dosage: 2 G, BID

REACTIONS (10)
  - Musculoskeletal stiffness [Unknown]
  - Fatigue [Unknown]
  - Kidney infection [Unknown]
  - Diarrhoea [Recovered/Resolved]
  - Abdominal pain [Recovered/Resolved]
  - Ulcer [Recovering/Resolving]
  - Malaise [Unknown]
  - Nephrolithiasis [Unknown]
  - Pregnancy [Unknown]
  - Immunodeficiency [Unknown]
